FAERS Safety Report 9842931 (Version 1)
Quarter: 2014Q1

REPORT INFORMATION
  Report Type: Report from Study
  Country: US (occurrence: US)
  Receive Date: 20140124
  Receipt Date: 20140124
  Transmission Date: 20141002
  Serious: Yes (Hospitalization)
  Sender: FDA-Public Use
  Company Number: US-GLAXOSMITHKLINE-A1057889A

PATIENT
  Age: 59 Year
  Sex: Male
  Weight: 77 kg

DRUGS (13)
  1. OFATUMUMAB [Suspect]
     Indication: CHRONIC LYMPHOCYTIC LEUKAEMIA
     Route: 042
     Dates: start: 20120906
  2. PENTOSTATIN [Suspect]
     Indication: CHRONIC LYMPHOCYTIC LEUKAEMIA
     Route: 042
     Dates: start: 20120906
  3. CYCLOPHOSPHAMIDE [Suspect]
     Indication: CHRONIC LYMPHOCYTIC LEUKAEMIA
     Route: 042
     Dates: start: 20120906
  4. AMBIEN [Concomitant]
     Indication: SLEEP DISORDER
     Dosage: 10MG AS REQUIRED
     Route: 048
  5. ASPIRIN [Concomitant]
     Dosage: 325MG PER DAY
     Route: 048
  6. FISH OIL [Concomitant]
     Dosage: 2000MG PER DAY
     Route: 048
  7. LEVAQUIN [Concomitant]
     Route: 048
  8. OXYCODONE [Concomitant]
     Dosage: 5MG AS REQUIRED
     Route: 048
  9. TOPROL XL [Concomitant]
     Dosage: 50MG PER DAY
     Route: 048
  10. SIMVASTATIN [Concomitant]
     Dosage: 1TAB PER DAY
     Route: 048
  11. TRICOR [Concomitant]
     Dosage: 24MG PER DAY
     Route: 048
  12. BACTRIM DS [Concomitant]
  13. VIAGRA [Concomitant]

REACTIONS (1)
  - Cellulitis [Recovered/Resolved]
